FAERS Safety Report 4677663-9 (Version None)
Quarter: 2005Q2

REPORT INFORMATION
  Report Type: 
  Country: None (occurrence: None)
  Receive Date: 20050531
  Receipt Date: 20050511
  Transmission Date: 20051028
  Serious: Yes (Hospitalization)
  Sender: FDA-Public Use
  Company Number: JP-MERCK-0505USA01636

PATIENT
  Age: 87 Year
  Sex: Male

DRUGS (4)
  1. COZAAR [Suspect]
     Indication: HYPERTENSION
     Route: 048
     Dates: start: 20050301, end: 20050328
  2. COZAAR [Suspect]
     Route: 048
     Dates: start: 20050408, end: 20050410
  3. RABEPRAZOLE SODIUM [Concomitant]
     Indication: GASTRIC ULCER
     Route: 048
  4. GASMOTIN [Concomitant]
     Indication: GASTRIC ULCER
     Route: 048

REACTIONS (2)
  - BLOOD ALKALINE PHOSPHATASE INCREASED [None]
  - DERMATITIS EXFOLIATIVE [None]
